FAERS Safety Report 15590409 (Version 2)
Quarter: 2018Q4

REPORT INFORMATION
  Report Type: Report from Study
  Country: US (occurrence: US)
  Receive Date: 20181106
  Receipt Date: 20181204
  Transmission Date: 20190205
  Serious: Yes (Other)
  Sender: FDA-Public Use
  Company Number: US-GILEAD-2018-0371820

PATIENT
  Age: 48 Year
  Sex: Female

DRUGS (2)
  1. AMBRISENTAN [Suspect]
     Active Substance: AMBRISENTAN
     Indication: PORTAL HYPERTENSION
     Dosage: 5 MG
     Route: 065
     Dates: start: 20170928
  2. AMBRISENTAN [Suspect]
     Active Substance: AMBRISENTAN
     Indication: PULMONARY HYPERTENSION

REACTIONS (2)
  - Malaise [Not Recovered/Not Resolved]
  - Pneumonia [Not Recovered/Not Resolved]
